FAERS Safety Report 9379067 (Version 2)
Quarter: 2013Q3

REPORT INFORMATION
  Report Type: Report from Study
  Country: BR (occurrence: BR)
  Receive Date: 20130702
  Receipt Date: 20130805
  Transmission Date: 20140515
  Serious: Yes (Other)
  Sender: FDA-Public Use
  Company Number: PHHY2013BR067894

PATIENT
  Age: 80 Year
  Sex: Male

DRUGS (3)
  1. DIOVAN HCT [Suspect]
     Indication: HYPERTENSION
     Dosage: 1 DF (160 MG VALS /25 MG HCTZ) DAILY
  2. CALTREN [Concomitant]
     Indication: CARDIAC DISORDER
     Dosage: 1 DF (20MG), DAILY
     Route: 048
  3. HEIMER [Concomitant]
     Indication: DEMENTIA ALZHEIMER^S TYPE
     Dosage: 2 DF, DAILY
     Route: 048

REACTIONS (6)
  - Amyotrophic lateral sclerosis [Not Recovered/Not Resolved]
  - Muscle atrophy [Not Recovered/Not Resolved]
  - Hypoaesthesia [Recovered/Resolved]
  - Dysphagia [Not Recovered/Not Resolved]
  - Arthritis [Not Recovered/Not Resolved]
  - Flatulence [Recovering/Resolving]
